FAERS Safety Report 8336190 (Version 2)
Quarter: 2014Q1

REPORT INFORMATION
  Report Type: Report from Study
  Country: MX (occurrence: MX)
  Receive Date: 20120113
  Receipt Date: 20140115
  Transmission Date: 20141002
  Serious: Yes (Death)
  Sender: FDA-Public Use
  Company Number: PHHY2012MX002573

PATIENT
  Age: 90 Year
  Sex: Female

DRUGS (3)
  1. EXELON PATCH [Suspect]
     Indication: AGGRESSION
     Dosage: 4.6 MG, QD
     Route: 003
     Dates: start: 20100920
  2. EXELON PATCH [Suspect]
     Indication: RESTLESSNESS
  3. EXELON PATCH [Suspect]
     Indication: OFF LABEL USE

REACTIONS (1)
  - Cardiac arrest [Fatal]
